FAERS Safety Report 8072152-6 (Version None)
Quarter: 2012Q1

REPORT INFORMATION
  Report Type: 
  Country: None (occurrence: None)
  Receive Date: 20120126
  Receipt Date: 20120116
  Transmission Date: 20120608
  Serious: No
  Sender: FDA-Public Use
  Company Number: US-ELI_LILLY_AND_COMPANY-US201112006430

PATIENT
  Sex: Male
  Weight: 99.773 kg

DRUGS (2)
  1. STRATTERA [Suspect]
     Indication: ATTENTION DEFICIT/HYPERACTIVITY DISORDER
     Dosage: 40 MG, QD
     Dates: start: 20110601
  2. STRATTERA [Suspect]
     Dosage: 18 MG, QD
     Dates: end: 20111228

REACTIONS (1)
  - TACHYCARDIA [None]
